APPROVED DRUG PRODUCT: FAMOTIDINE
Active Ingredient: FAMOTIDINE
Strength: 20MG
Dosage Form/Route: TABLET;ORAL
Application: A077351 | Product #001
Applicant: PERRIGO R AND D CO
Approved: Sep 25, 2006 | RLD: No | RS: No | Type: OTC